FAERS Safety Report 26050884 (Version 2)
Quarter: 2025Q4

REPORT INFORMATION
  Report Type: Spontaneous
  Country: US (occurrence: US)
  Receive Date: 20251116
  Receipt Date: 20251216
  Transmission Date: 20260118
  Serious: Yes (Other)
  Sender: JOHNSON AND JOHNSON
  Company Number: US-JNJFOC-20251154046

PATIENT
  Age: 71 Year
  Sex: Female

DRUGS (1)
  1. CARVYKTI [Suspect]
     Active Substance: CILTACABTAGENE AUTOLEUCEL
     Indication: Product used for unknown indication
     Dosage: NO: OF UNITS: 70 ML. DOSLE: 0.6 X 10^6 CAR+ VT CELLS/KG
     Dates: start: 20251006, end: 20251006

REACTIONS (1)
  - Bell^s palsy [Recovering/Resolving]

NARRATIVE: CASE EVENT DATE: 20251103
